FAERS Safety Report 20211244 (Version 1)
Quarter: 2021Q4

REPORT INFORMATION
  Report Type: Spontaneous
  Country: US (occurrence: None)
  Receive Date: 20211220
  Receipt Date: 20211220
  Transmission Date: 20220303
  Serious: Yes (Other)
  Sender: FDA-Public Use
  Company Number: None

PATIENT
  Age: 55 Year
  Sex: Female
  Weight: 142 kg

DRUGS (1)
  1. SUGAMMADEX [Suspect]
     Active Substance: SUGAMMADEX
     Indication: Neuromuscular blockade reversal
     Dosage: FREQUENCY : ONCE;?
     Route: 042
     Dates: start: 20211213, end: 20211213

REACTIONS (2)
  - Neuromuscular blockade reversal [None]
  - Procedural complication [None]

NARRATIVE: CASE EVENT DATE: 20211213
